FAERS Safety Report 5080368-6 (Version None)
Quarter: 2006Q3

REPORT INFORMATION
  Report Type: 
  Country: None (occurrence: None)
  Receive Date: 20060814
  Receipt Date: 20060814
  Transmission Date: 20061208
  Serious: Yes (Death)
  Sender: FDA-Public Use
  Company Number: None

PATIENT
  Age: 83 Year
  Sex: Male

DRUGS (4)
  1. RISPERIDONE [Suspect]
     Indication: AGITATION
     Dosage: PO
     Route: 048
     Dates: start: 20060714, end: 20060803
  2. RISPERIDONE [Suspect]
     Indication: DEMENTIA
     Dosage: PO
     Route: 048
     Dates: start: 20060714, end: 20060803
  3. BLOOD PRESSURE MEDICATION [Concomitant]
  4. SEDATIVE [Concomitant]

REACTIONS (7)
  - ASTHENIA [None]
  - DYSPHAGIA [None]
  - FLUID INTAKE REDUCED [None]
  - GAIT DISTURBANCE [None]
  - MEDICATION ERROR [None]
  - ORAL INTAKE REDUCED [None]
  - SOMNOLENCE [None]
